FAERS Safety Report 8474936-9 (Version None)
Quarter: 2012Q2

REPORT INFORMATION
  Report Type: 
  Country: None (occurrence: None)
  Receive Date: 20120628
  Receipt Date: 20120625
  Transmission Date: 20120825
  Serious: Yes (Life-Threatening, Hospitalization)
  Sender: FDA-Public Use
  Company Number: PHHO2012IT009452

PATIENT
  Sex: Female
  Weight: 46 kg

DRUGS (7)
  1. BACTRIM [Concomitant]
     Dosage: 1/2
     Route: 048
     Dates: start: 20120617
  2. NEORAL [Suspect]
     Indication: RENAL TRANSPLANT
     Dosage: 0.75 MG, UNK
     Route: 048
     Dates: start: 20120613
  3. PANTOPRAZOLE SODIUM [Concomitant]
     Dosage: 40 MG, UNK
     Route: 048
     Dates: start: 20120617, end: 20120624
  4. ATENOLOL [Concomitant]
     Indication: HYPERTENSION
     Dosage: 100 MG, BID
     Route: 048
     Dates: start: 20120620, end: 20120623
  5. CERTICAN [Suspect]
     Indication: RENAL TRANSPLANT
     Dosage: 1.25 MG, UNK
     Route: 048
     Dates: start: 20120615, end: 20120623
  6. MEDROL [Suspect]
     Indication: RENAL TRANSPLANT
     Dosage: 4 MG, UNK
     Route: 048
     Dates: start: 20120613
  7. ZOVIRAX [Concomitant]
     Indication: ORAL HERPES
     Dosage: 800 MG, UNK
     Route: 048
     Dates: start: 20120623, end: 20120623

REACTIONS (2)
  - COMA [None]
  - CENTRAL NERVOUS SYSTEM INFECTION [None]
